FAERS Safety Report 4422569-3 (Version None)
Quarter: 2004Q3

REPORT INFORMATION
  Report Type: 
  Country: None (occurrence: None)
  Receive Date: 20040810
  Receipt Date: 20040802
  Transmission Date: 20050211
  Serious: Yes (Other)
  Sender: FDA-Public Use
  Company Number: PHFR2004GB03031

PATIENT
  Age: 76 Year
  Sex: Female
  Weight: 64 kg

DRUGS (7)
  1. VALSARTAN [Suspect]
     Dosage: 1/DAY
     Route: 048
     Dates: start: 20020325, end: 20040723
  2. BENDROFLUAZIDE [Suspect]
  3. AMIODARONE [Concomitant]
     Indication: ATRIAL FIBRILLATION
     Dosage: 2/DAY
     Dates: start: 20010502
  4. WARFARIN SODIUM [Concomitant]
     Dates: start: 20020429
  5. DIGOXIN [Concomitant]
     Dosage: 1/DAY
     Dates: start: 20040114
  6. LEVOTHYROXINE SODIUM [Concomitant]
     Dosage: 1/DAY
     Dates: start: 20031115
  7. THYROXINE [Concomitant]
     Dosage: 1/DAY
     Dates: end: 20040715

REACTIONS (5)
  - BLOOD CREATININE INCREASED [None]
  - BLOOD PRESSURE INCREASED [None]
  - BLOOD UREA INCREASED [None]
  - DRUG INTERACTION [None]
  - RENAL IMPAIRMENT [None]
